FAERS Safety Report 8623069-7 (Version None)
Quarter: 2012Q3

REPORT INFORMATION
  Report Type: 
  Country: None (occurrence: None)
  Receive Date: 20120827
  Receipt Date: 20120821
  Transmission Date: 20120928
  Serious: Yes (Other)
  Sender: FDA-Public Use
  Company Number: US-JNJFOC-20120512659

PATIENT
  Sex: Female
  Weight: 58.97 kg

DRUGS (6)
  1. REMICADE [Suspect]
     Indication: PSORIATIC ARTHROPATHY
     Route: 042
     Dates: start: 20120405, end: 20120419
  2. METHOTREXATE [Concomitant]
     Route: 065
  3. LEFLUNOMIDE [Concomitant]
     Indication: PSORIATIC ARTHROPATHY
     Route: 065
  4. METHOTREXATE [Concomitant]
     Route: 065
  5. METHOTREXATE [Concomitant]
     Indication: PSORIASIS
     Route: 065
  6. METHOTREXATE [Concomitant]
     Indication: PSORIATIC ARTHROPATHY
     Route: 065

REACTIONS (12)
  - DIZZINESS [None]
  - HYPERTENSION [None]
  - PSORIATIC ARTHROPATHY [None]
  - DRUG HYPERSENSITIVITY [None]
  - LOSS OF CONSCIOUSNESS [None]
  - PARAESTHESIA [None]
  - CHEST PAIN [None]
  - NAUSEA [None]
  - HEADACHE [None]
  - VOMITING [None]
  - ADVERSE EVENT [None]
  - MUSCULOSKELETAL DISORDER [None]
